FAERS Safety Report 12372630 (Version 1)
Quarter: 2016Q2

REPORT INFORMATION
  Report Type: Report from Study
  Country: US (occurrence: US)
  Receive Date: 20160516
  Receipt Date: 20160516
  Transmission Date: 20160815
  Serious: Yes (Death, Hospitalization)
  Sender: FDA-Public Use
  Company Number: US-CELGENEUS-163-21880-12092209

PATIENT
  Age: 67 Year
  Sex: Male
  Weight: 106.2 kg

DRUGS (3)
  1. REVLIMID [Suspect]
     Active Substance: LENALIDOMIDE
     Indication: PLASMA CELL MYELOMA
     Dosage: 25 MILLIGRAM
     Route: 048
     Dates: start: 20120813, end: 20120813
  2. BORTEZOMIB [Suspect]
     Active Substance: BORTEZOMIB
     Indication: PLASMA CELL MYELOMA
     Route: 041
     Dates: start: 20120813, end: 20120813
  3. DEXAMETHASONE. [Suspect]
     Active Substance: DEXAMETHASONE
     Indication: PLASMA CELL MYELOMA
     Route: 065
     Dates: start: 20120813, end: 20120813

REACTIONS (5)
  - Plasma cell myeloma [Fatal]
  - Acute kidney injury [Unknown]
  - Pain [Unknown]
  - Fluid overload [Unknown]
  - Pneumonia [Unknown]

NARRATIVE: CASE EVENT DATE: 20120815
